FAERS Safety Report 21286448 (Version 1)
Quarter: 2022Q3

REPORT INFORMATION
  Report Type: Report from Study
  Country: US (occurrence: US)
  Receive Date: 20220902
  Receipt Date: 20220902
  Transmission Date: 20221026
  Serious: Yes (Hospitalization, Other)
  Sender: FDA-Public Use
  Company Number: US-BRISTOL-MYERS SQUIBB COMPANY-2022-096112

PATIENT
  Age: 64 Year
  Sex: Male
  Weight: 109.32 kg

DRUGS (1)
  1. POMALYST [Suspect]
     Active Substance: POMALIDOMIDE
     Indication: Plasma cell myeloma
     Dosage: AT BED TIME FOR 28 DAYS
     Route: 048
     Dates: start: 202004

REACTIONS (2)
  - Cholecystitis infective [Unknown]
  - Off label use [Unknown]
